FAERS Safety Report 26213045 (Version 1)
Quarter: 2025Q4

REPORT INFORMATION
  Report Type: Other
  Country: EU (occurrence: EU)
  Receive Date: 20251230
  Receipt Date: 20251230
  Transmission Date: 20260117
  Serious: Yes (Other)
  Sender: MACLEODS
  Company Number: EU-EMB-M202406288-1

PATIENT

DRUGS (10)
  1. PANTOPRAZOLE [Suspect]
     Active Substance: PANTOPRAZOLE
     Indication: Product used for unknown indication
     Dosage: AS NEEDED
     Route: 064
     Dates: start: 202405, end: 202502
  2. ZOLMITRIPTAN [Suspect]
     Active Substance: ZOLMITRIPTAN
     Indication: Product used for unknown indication
     Route: 064
     Dates: start: 202406, end: 202406
  3. DICLOFENAC [Suspect]
     Active Substance: DICLOFENAC
     Indication: Product used for unknown indication
     Route: 064
     Dates: start: 202406, end: 202406
  4. PREDNISOLONE [Suspect]
     Active Substance: PREDNISOLONE
     Indication: Product used for unknown indication
     Route: 064
     Dates: start: 202406, end: 202406
  5. IBUPROFEN [Suspect]
     Active Substance: IBUPROFEN
     Indication: Product used for unknown indication
     Dosage: 2400 MG/D BECAUSE OF AN ACUTE MIGRAINE ATTACK AT GW 5, OTHERWISE 600MG AS NEEDED
     Route: 064
     Dates: start: 202405, end: 202411
  6. IBUPROFEN [Suspect]
     Active Substance: IBUPROFEN
     Route: 064
  7. ACETAMINOPHEN [Suspect]
     Active Substance: ACETAMINOPHEN
     Indication: Product used for unknown indication
     Dosage: 3000 MG/D BECAUSE OF AN ACUTE MIGRAINE ATTACK AT GW 5, OTHERWISE AS NEEDED
     Route: 064
     Dates: start: 202405, end: 202502
  8. NOVALGIN (METAMIZOLE SODIUM) [Suspect]
     Active Substance: METAMIZOLE SODIUM
     Indication: Product used for unknown indication
     Route: 064
     Dates: start: 202406, end: 202406
  9. METHOCARBAMOL [Suspect]
     Active Substance: METHOCARBAMOL
     Indication: Product used for unknown indication
     Route: 064
     Dates: start: 202406, end: 202406
  10. GAVISCON [Suspect]
     Active Substance: ALUMINUM HYDROXIDE\MAGNESIUM CARBONATE
     Indication: Product used for unknown indication
     Dosage: AS NEEDED, ALMOST DAILY
     Route: 064
     Dates: start: 202405, end: 202502

REACTIONS (2)
  - Small for dates baby [Not Recovered/Not Resolved]
  - Foetal exposure during pregnancy [Unknown]

NARRATIVE: CASE EVENT DATE: 20250201
